FAERS Safety Report 21638746 (Version 5)
Quarter: 2023Q2

REPORT INFORMATION
  Report Type: Report from Study
  Country: IT (occurrence: IT)
  Receive Date: 20221124
  Receipt Date: 20230522
  Transmission Date: 20230721
  Serious: Yes (Death, Other)
  Sender: FDA-Public Use
  Company Number: None

PATIENT
  Age: 86 Year
  Sex: Female

DRUGS (4)
  1. METHOTREXATE SODIUM [Suspect]
     Active Substance: METHOTREXATE SODIUM
     Indication: Rheumatoid arthritis
     Dosage: 5 MG, 1X/DAY
     Route: 048
     Dates: start: 20221104, end: 20221112
  2. CLINDAMYCIN PHOSPHATE [Suspect]
     Active Substance: CLINDAMYCIN PHOSPHATE
     Indication: Lung abscess
     Route: 042
     Dates: start: 20221103, end: 20221111
  3. AMOXICILLIN\CLAVULANIC ACID [Suspect]
     Active Substance: AMOXICILLIN\CLAVULANIC ACID
     Indication: Lung abscess
     Dosage: UNK
     Route: 048
     Dates: start: 20221103, end: 20221108
  4. PIPERACILLIN AND TAZOBACTAM [Suspect]
     Active Substance: PIPERACILLIN SODIUM\TAZOBACTAM SODIUM
     Indication: Lung abscess
     Dosage: UNK
     Dates: start: 20221108, end: 20221111

REACTIONS (6)
  - Leukopenia [Fatal]
  - Hypertransaminasaemia [Fatal]
  - Mucosal inflammation [Fatal]
  - Rash [Fatal]
  - Transcription medication error [Unknown]
  - Medication error [Fatal]

NARRATIVE: CASE EVENT DATE: 20221104
